FAERS Safety Report 9543741 (Version 2)
Quarter: 2013Q4

REPORT INFORMATION
  Report Type: Spontaneous
  Country: AU (occurrence: AU)
  Receive Date: 20130923
  Receipt Date: 20131108
  Transmission Date: 20140711
  Serious: Yes (Life-Threatening)
  Sender: FDA-Public Use
  Company Number: AU-BAXTER-2013BAX036240

PATIENT
  Age: 69 Year
  Sex: Male
  Weight: 76 kg

DRUGS (4)
  1. BAXTER 0.9% SODIUM CHLORIDE 450MG_50ML INJECTION BP BAG AHB1306_AHB136 [Suspect]
     Indication: MEDICATION DILUTION
     Route: 042
     Dates: start: 20130826, end: 20130826
  2. DOCETAXEL [Suspect]
     Indication: PROSTATE CANCER
     Dosage: 80MG/4ML
     Route: 042
     Dates: start: 20130826, end: 20130826
  3. DOCETAXEL [Suspect]
     Dates: start: 20130826, end: 20130826
  4. DEXAMETHASONE [Suspect]
     Indication: PREMEDICATION
     Route: 042
     Dates: start: 20130826, end: 20130826

REACTIONS (3)
  - Dyspnoea [Recovered/Resolved]
  - Flushing [Recovered/Resolved]
  - Back pain [Recovered/Resolved]
